FAERS Safety Report 19602651 (Version 2)
Quarter: 2022Q2

REPORT INFORMATION
  Report Type: Spontaneous
  Country: US (occurrence: US)
  Receive Date: 20210723
  Receipt Date: 20220414
  Transmission Date: 20220721
  Serious: No
  Sender: FDA-Public Use
  Company Number: US-PFIZER INC-2021541347

PATIENT
  Age: 58 Year
  Sex: Male

DRUGS (1)
  1. INLYTA [Suspect]
     Active Substance: AXITINIB
     Dosage: UNK UNK, 2X/DAY (TAKE 4 TABLETS BY MOUTH EVERY 12 HOURS)
     Route: 048

REACTIONS (1)
  - Neoplasm progression [Unknown]
